APPROVED DRUG PRODUCT: CLOBAZAM
Active Ingredient: CLOBAZAM
Strength: 20MG
Dosage Form/Route: TABLET;ORAL
Application: A212092 | Product #002
Applicant: CHARTWELL MOLECULAR HOLDINGS LLC
Approved: Oct 30, 2019 | RLD: No | RS: No | Type: DISCN